FAERS Safety Report 5636787-X (Version None)
Quarter: 2008Q1

REPORT INFORMATION
  Report Type: 
  Country: None (occurrence: None)
  Receive Date: 20080219
  Receipt Date: 20080219
  Transmission Date: 20080703
  Serious: Yes (Hospitalization)
  Sender: FDA-Public Use
  Company Number: None

PATIENT
  Age: 57 Year
  Sex: Male

DRUGS (1)
  1. NAPROXEN [Suspect]
     Dosage: 800MG BID PO
     Route: 048
     Dates: start: 20070508, end: 20070814

REACTIONS (4)
  - DIARRHOEA [None]
  - DYSPEPSIA [None]
  - NAUSEA [None]
  - VOMITING [None]
